FAERS Safety Report 6700271-2 (Version None)
Quarter: 2010Q2

REPORT INFORMATION
  Report Type: 
  Country: None (occurrence: None)
  Receive Date: 20100428
  Receipt Date: 20091012
  Transmission Date: 20101027
  Serious: Yes (Death, Hospitalization)
  Sender: FDA-Public Use
  Company Number: TH-SANOFI-AVENTIS-F01200801887

PATIENT
  Age: 57 Year
  Sex: Female

DRUGS (1)
  1. DOXORUBICIN HCL [Suspect]
     Dosage: UNIT DOSE: 50 MG/M2
     Route: 041
     Dates: start: 20081013, end: 20081013

REACTIONS (1)
  - CARDIAC FAILURE [None]
